FAERS Safety Report 10045261 (Version 1)
Quarter: 2014Q1

REPORT INFORMATION
  Report Type: Spontaneous
  Country: BR (occurrence: BR)
  Receive Date: 20140328
  Receipt Date: 20140328
  Transmission Date: 20141002
  Serious: Yes (Other)
  Sender: FDA-Public Use
  Company Number: PHHY2014BR034766

PATIENT
  Sex: Female
  Weight: 58 kg

DRUGS (1)
  1. SANDOSTATIN LAR [Suspect]
     Indication: ACROMEGALY
     Dosage: 1 DF, EVERY 30 DAYS

REACTIONS (7)
  - Depression [Unknown]
  - Deformity [Unknown]
  - Feeling abnormal [Unknown]
  - Swelling [Unknown]
  - Stress [Unknown]
  - Back pain [Unknown]
  - Pain in extremity [Unknown]
